FAERS Safety Report 6656750-X (Version None)
Quarter: 2010Q1

REPORT INFORMATION
  Report Type: 
  Country: None (occurrence: None)
  Receive Date: 20100329
  Receipt Date: 20100319
  Transmission Date: 20100710
  Serious: Yes (Other)
  Sender: FDA-Public Use
  Company Number: BE-ABBOTT-09P-013-0564704-00

PATIENT
  Sex: Female
  Weight: 50 kg

DRUGS (3)
  1. HUMIRA [Suspect]
     Indication: RHEUMATOID ARTHRITIS
     Route: 050
     Dates: start: 20080901, end: 20090301
  2. LEFLUNOMIDE [Suspect]
     Indication: RHEUMATOID ARTHRITIS
     Dates: start: 19990101, end: 19990318
  3. ALDACTAZINE [Concomitant]
     Indication: HYPERTENSION
     Dates: end: 19990318

REACTIONS (13)
  - ANGIOMYOLIPOMA [None]
  - APHASIA [None]
  - AUTOIMMUNE HEPATITIS [None]
  - CARDIAC ARREST [None]
  - DUODENAL ULCER PERFORATION [None]
  - GASTRIC ULCER PERFORATION [None]
  - HEPATIC CIRRHOSIS [None]
  - HEPATIC FAILURE [None]
  - POST PROCEDURAL COMPLICATION [None]
  - POST PROCEDURAL HAEMATOMA [None]
  - RESPIRATORY ARREST [None]
  - TOXIC ENCEPHALOPATHY [None]
  - TREMOR [None]
